FAERS Safety Report 8145540-7 (Version None)
Quarter: 2012Q1

REPORT INFORMATION
  Report Type: 
  Country: None (occurrence: None)
  Receive Date: 20120217
  Receipt Date: 20110309
  Transmission Date: 20120608
  Serious: No
  Sender: FDA-Public Use
  Company Number: US-ABBOTT-11P-163-0709345-00

PATIENT
  Sex: Male
  Weight: 81.72 kg

DRUGS (7)
  1. SIMCOR [Suspect]
     Indication: BLOOD CHOLESTEROL INCREASED
     Dosage: 1 TAB= 500/40MG QHS W/ASA 30 MIN PRIOR
     Route: 048
     Dates: start: 20110302, end: 20110306
  2. ASPIRIN [Concomitant]
     Indication: PRODUCT USED FOR UNKNOWN INDICATION
     Dosage: 1 TAB HALF HOUR BEFORE SIMCOR DAILY
     Route: 048
     Dates: start: 20110302, end: 20110306
  3. BENICAR [Concomitant]
     Indication: HYPERTENSION
  4. FISH OIL [Concomitant]
     Indication: PRODUCT USED FOR UNKNOWN INDICATION
  5. SIMVASTATIN [Concomitant]
     Indication: BLOOD CHOLESTEROL INCREASED
     Dosage: TAKING PRIOR TO SIMCOR THERAPY
     Dates: end: 20110201
  6. SIMVASTATIN [Concomitant]
     Indication: BLOOD TRIGLYCERIDES INCREASED
     Route: 048
     Dates: start: 20110307
  7. SIMCOR [Suspect]
     Indication: BLOOD TRIGLYCERIDES INCREASED

REACTIONS (7)
  - POLLAKIURIA [None]
  - MUSCULAR WEAKNESS [None]
  - HEADACHE [None]
  - ERUCTATION [None]
  - PRURITUS [None]
  - INSOMNIA [None]
  - STRESS [None]
